FAERS Safety Report 7274381-8 (Version None)
Quarter: 2011Q1

REPORT INFORMATION
  Report Type: 
  Country: None (occurrence: None)
  Receive Date: 20110204
  Receipt Date: 20110124
  Transmission Date: 20110831
  Serious: Yes (Hospitalization)
  Sender: FDA-Public Use
  Company Number: CN-SOLVAY-00211000698

PATIENT
  Age: 16719 Day
  Sex: Male

DRUGS (1)
  1. ACERTIL 4 MG [Suspect]
     Indication: HYPERTENSION
     Dosage: DAILY DOSE: 4 MILLIGRAM(S)
     Route: 048
     Dates: start: 20101217

REACTIONS (1)
  - GYNAECOMASTIA [None]
